FAERS Safety Report 5512685-7 (Version None)
Quarter: 2007Q4

REPORT INFORMATION
  Report Type: 
  Country: None (occurrence: None)
  Receive Date: 20071112
  Receipt Date: 20071105
  Transmission Date: 20080405
  Serious: Yes (Death, Hospitalization, Other)
  Sender: FDA-Public Use
  Company Number: JP-JNJFOC-20070900636

PATIENT
  Sex: Male
  Weight: 52 kg

DRUGS (18)
  1. REMICADE [Suspect]
     Route: 042
  2. REMICADE [Suspect]
     Route: 042
  3. REMICADE [Suspect]
     Route: 042
  4. REMICADE [Suspect]
     Indication: RHEUMATOID ARTHRITIS
     Dosage: 4 INFUSIONS ON UNSPECIFIED DATES.
     Route: 042
  5. PREDONINE [Suspect]
     Indication: PROPHYLAXIS
     Route: 048
  6. PREDONINE [Suspect]
     Indication: RHEUMATOID ARTHRITIS
     Route: 048
  7. RHEUMATREX [Suspect]
     Indication: PROPHYLAXIS
     Route: 048
  8. RHEUMATREX [Suspect]
     Indication: RHEUMATOID ARTHRITIS
     Route: 048
  9. PROGRAF [Suspect]
     Indication: PROPHYLAXIS
     Route: 048
  10. PROGRAF [Suspect]
     Indication: RHEUMATOID ARTHRITIS
     Route: 048
  11. HYPEN [Suspect]
     Indication: PROPHYLAXIS
     Route: 048
  12. HYPEN [Suspect]
     Indication: RHEUMATOID ARTHRITIS
     Route: 048
  13. FOLIAMIN [Concomitant]
     Indication: PROPHYLAXIS
     Route: 048
  14. FOLIAMIN [Concomitant]
     Indication: RHEUMATOID ARTHRITIS
     Route: 048
  15. FAMOTIDINE [Concomitant]
     Indication: PROPHYLAXIS
     Route: 048
  16. FAMOTIDINE [Concomitant]
     Indication: RHEUMATOID ARTHRITIS
     Route: 048
  17. SELBEX [Concomitant]
     Indication: PROPHYLAXIS
     Route: 048
  18. SELBEX [Concomitant]
     Indication: RHEUMATOID ARTHRITIS
     Route: 048

REACTIONS (3)
  - GASTRIC ULCER [None]
  - INTERSTITIAL LUNG DISEASE [None]
  - PULMONARY TUBERCULOSIS [None]
